FAERS Safety Report 8893425 (Version 1)
Quarter: 2012Q4

REPORT INFORMATION
  Report Type: 
  Country: US (occurrence: US)
  Receive Date: 20121107
  Receipt Date: 20121107
  Transmission Date: 20130627
  Serious: No
  Sender: FDA-Public Use
  Company Number: US-AMGEN-USASP2011053020

PATIENT
  Age: 46 Year
  Sex: Male
  Weight: 108.84 kg

DRUGS (7)
  1. ENBREL [Suspect]
     Indication: PRODUCT USED FOR UNKNOWN INDICATION
     Dosage: 50 mg, qwk
  2. PROTONIX [Concomitant]
     Dosage: 20 mg, UNK
  3. PREDNISONE [Concomitant]
  4. LEFLUNOMIDE [Concomitant]
  5. ALEVE [Concomitant]
     Dosage: 220 mg, UNK
  6. MULTIVITAMIN                       /00097801/ [Concomitant]
  7. FLOVENT [Concomitant]
     Dosage: 110 mug, UNK

REACTIONS (3)
  - Night sweats [Unknown]
  - Fatigue [Unknown]
  - Body temperature increased [Unknown]
